FAERS Safety Report 6840340-X (Version None)
Quarter: 2010Q3

REPORT INFORMATION
  Report Type: 
  Country: None (occurrence: None)
  Receive Date: 20100713
  Receipt Date: 20100713
  Transmission Date: 20110219
  Serious: Yes (Life-Threatening, Hospitalization)
  Sender: FDA-Public Use
  Company Number: None

PATIENT
  Age: 55 Year
  Sex: Female
  Weight: 70.3075 kg

DRUGS (3)
  1. LISINOPRIL [Suspect]
     Indication: HYPERTENSION
     Dosage: ONCE DAILY
     Dates: start: 20030102, end: 20030707
  2. ATENOLOL [Suspect]
     Indication: MYOCARDIAL INFARCTION
     Dosage: ONCE DAILY
     Dates: start: 20030103, end: 20100707
  3. ATENOLOL [Suspect]
     Indication: PROPHYLAXIS
     Dosage: ONCE DAILY
     Dates: start: 20030103, end: 20100707

REACTIONS (1)
  - LEUKOPENIA [None]
